FAERS Safety Report 9347717 (Version 1)
Quarter: 2013Q2

REPORT INFORMATION
  Report Type: Spontaneous
  Country: US (occurrence: None)
  Receive Date: 20130611
  Receipt Date: 20130611
  Transmission Date: 20140414
  Serious: No
  Sender: FDA-Public Use
  Company Number: None

PATIENT
  Age: 33 Year
  Sex: Male

DRUGS (1)
  1. VISIPAQUE [Suspect]
     Indication: COMPUTERISED TOMOGRAM
     Dates: start: 20130420, end: 20130420

REACTIONS (2)
  - Contrast media allergy [None]
  - Rash [None]
